FAERS Safety Report 11453959 (Version 2)
Quarter: 2015Q3

REPORT INFORMATION
  Report Type: Spontaneous
  Country: US (occurrence: US)
  Receive Date: 20150903
  Receipt Date: 20150914
  Transmission Date: 20151125
  Serious: Yes (Other)
  Sender: FDA-Public Use
  Company Number: PHEH2015US016969

PATIENT
  Sex: Female

DRUGS (1)
  1. ZOMETA [Suspect]
     Active Substance: ZOLEDRONIC ACID
     Indication: PRODUCT USED FOR UNKNOWN INDICATION
     Route: 042
     Dates: start: 201501

REACTIONS (10)
  - Arthralgia [Unknown]
  - Chronic graft versus host disease [Unknown]
  - Dry eye [Unknown]
  - Musculoskeletal stiffness [Unknown]
  - Influenza like illness [Recovered/Resolved]
  - Peripheral swelling [Unknown]
  - Headache [Recovered/Resolved]
  - Fatigue [Unknown]
  - Skin disorder [Unknown]
  - Rash [Unknown]
